FAERS Safety Report 7525868-1 (Version None)
Quarter: 2011Q2

REPORT INFORMATION
  Report Type: 
  Country: None (occurrence: None)
  Receive Date: 20110606
  Receipt Date: 20110531
  Transmission Date: 20111010
  Serious: Yes (Hospitalization)
  Sender: FDA-Public Use
  Company Number: A0929689A

PATIENT
  Sex: Female

DRUGS (2)
  1. ADVAIR DISKUS 100/50 [Suspect]
     Indication: ASTHMA
     Route: 055
     Dates: start: 20050101, end: 20110525
  2. VENTOLIN HFA [Concomitant]

REACTIONS (5)
  - BRONCHITIS [None]
  - MALAISE [None]
  - DRUG INTOLERANCE [None]
  - PRODUCT QUALITY ISSUE [None]
  - ASTHMA [None]
